FAERS Safety Report 25754967 (Version 1)
Quarter: 2025Q3

REPORT INFORMATION
  Report Type: Spontaneous
  Country: BR (occurrence: BR)
  Receive Date: 20250903
  Receipt Date: 20250903
  Transmission Date: 20251020
  Serious: Yes (Life-Threatening, Hospitalization, Other)
  Sender: Unknown Manufacturer
  Company Number: BR-862174955-ML2025-04400

PATIENT
  Age: 26 Year
  Sex: Female

DRUGS (1)
  1. BUPROPION [Suspect]
     Active Substance: BUPROPION
     Indication: Depression

REACTIONS (6)
  - Aspiration [Recovered/Resolved]
  - Toxicity to various agents [Recovered/Resolved]
  - Coma [Recovered/Resolved]
  - Myoclonus [Recovered/Resolved]
  - Agitation [Recovered/Resolved]
  - Overdose [Unknown]
